FAERS Safety Report 4740490-8 (Version None)
Quarter: 2005Q3

REPORT INFORMATION
  Report Type: 
  Country: None (occurrence: None)
  Receive Date: 20050804
  Receipt Date: 20050721
  Transmission Date: 20060218
  Serious: Yes (Other)
  Sender: FDA-Public Use
  Company Number: 200410505BBE

PATIENT
  Sex: Male

DRUGS (17)
  1. HYPRHO-D [Suspect]
     Indication: PREGNANCY
  2. IMMUNE GLOBULIN (HUMAN) [Suspect]
  3. IMMUNE GLOBULIN (HUMAN) [Suspect]
  4. IMMUNE GLOBULIN (HUMAN) [Suspect]
  5. IMMUNE GLOBULIN (HUMAN) [Suspect]
  6. IMMUNE GLOBULIN (HUMAN) [Suspect]
  7. IMMUNE GLOBULIN (HUMAN) [Suspect]
  8. IMMUNE GLOBULIN (HUMAN) [Suspect]
  9. IMMUNE GLOBULIN (HUMAN) [Suspect]
  10. IMMUNE GLOBULIN (HUMAN) [Suspect]
  11. PRELONE [Concomitant]
  12. HEPATITIS B VACCINE [Concomitant]
  13. RACEMIC EPINEPHRINE [Concomitant]
  14. ROCEPHIN [Concomitant]
  15. AMPICILLIN [Concomitant]
  16. ZITHROMAX [Concomitant]
  17. RITALIN [Concomitant]

REACTIONS (20)
  - ADENOIDAL HYPERTROPHY [None]
  - AUTISM [None]
  - AVERSION [None]
  - BRONCHIOLITIS [None]
  - BRONCHITIS ACUTE [None]
  - COMMUNICATION DISORDER [None]
  - CROUP INFECTIOUS [None]
  - DEVELOPMENTAL DELAY [None]
  - DRUG EXPOSURE DURING PREGNANCY [None]
  - DYSPHAGIA [None]
  - FORCEPS DELIVERY [None]
  - HEARING IMPAIRED [None]
  - INTERSTITIAL LUNG DISEASE [None]
  - LARYNGEAL STENOSIS [None]
  - MENTAL RETARDATION SEVERITY UNSPECIFIED [None]
  - METAL POISONING [None]
  - NEUROTOXICITY [None]
  - OTITIS MEDIA CHRONIC [None]
  - STRIDOR [None]
  - VIRAL PHARYNGITIS [None]
